FAERS Safety Report 9683194 (Version 2)
Quarter: 2013Q4

REPORT INFORMATION
  Report Type: Spontaneous
  Country: DE (occurrence: DE)
  Receive Date: 20131112
  Receipt Date: 20131112
  Transmission Date: 20140711
  Serious: Yes (Other)
  Sender: FDA-Public Use
  Company Number: DE-ELI_LILLY_AND_COMPANY-DE201309009105

PATIENT
  Sex: Female

DRUGS (16)
  1. CYMBALTA [Suspect]
     Indication: DIABETIC NEUROPATHY
     Dosage: 30 MG, BID
     Route: 048
     Dates: start: 2011
  2. ISCOVER [Concomitant]
  3. PANTOPRAZOL [Concomitant]
  4. BISOPROLOL [Concomitant]
  5. TOREM                              /01036501/ [Concomitant]
  6. SIMVASTATIN [Concomitant]
  7. MCP                                /00041901/ [Concomitant]
  8. NOVALGIN                           /06276704/ [Concomitant]
  9. MORPHIN                            /00036303/ [Concomitant]
     Dosage: 2.5 MG, QD
  10. MOVICOL                            /01625101/ [Concomitant]
  11. GABAPENTIN [Concomitant]
     Indication: POLYNEUROPATHY
     Dosage: 600 MG, BID
     Route: 065
  12. GABAPENTIN [Concomitant]
     Dosage: 300 MG, EACH EVENING
     Route: 065
  13. INSULIN [Concomitant]
  14. VITAMIN B1 [Concomitant]
  15. ATACAND [Concomitant]
  16. FOLIC ACID [Concomitant]

REACTIONS (4)
  - Cardiac failure [Unknown]
  - Epilepsy [Recovered/Resolved]
  - Off label use [Unknown]
  - Drug withdrawal syndrome [Unknown]
